FAERS Safety Report 4299504-4 (Version None)
Quarter: 2004Q1

REPORT INFORMATION
  Report Type: 
  Country: None (occurrence: None)
  Receive Date: 20040217
  Receipt Date: 20040210
  Transmission Date: 20041129
  Serious: No
  Sender: FDA-Public Use
  Company Number: 200410477BCC

PATIENT
  Sex: Male
  Weight: 102.0593 kg

DRUGS (6)
  1. ASPIRIN [Suspect]
     Indication: ARTHRALGIA
     Dosage: 325-650 MG, Q1MON, ORAL
     Route: 048
  2. BACLOFEN [Concomitant]
  3. DITROPAN [Concomitant]
  4. EROEIGL [Concomitant]
  5. BUMETANIDE [Concomitant]
  6. TYLENOL (CAPLET) [Concomitant]

REACTIONS (2)
  - BLOOD URINE [None]
  - EPISTAXIS [None]
